FAERS Safety Report 6860153-2 (Version None)
Quarter: 2010Q3

REPORT INFORMATION
  Report Type: 
  Country: None (occurrence: None)
  Receive Date: 20100720
  Receipt Date: 20091104
  Transmission Date: 20110219
  Serious: No
  Sender: FDA-Public Use
  Company Number: US-PFIZER INC-2007047813

PATIENT
  Sex: Male
  Weight: 88.5 kg

DRUGS (4)
  1. CHANTIX [Suspect]
     Indication: SMOKING CESSATION THERAPY
  2. OXYCODONE [Concomitant]
     Indication: BACK PAIN
     Dosage: 30 MG, 3X/DAY
     Dates: start: 20070101
  3. VALIUM [Concomitant]
     Indication: BACK PAIN
     Dosage: 5 MG, 4X/DAY
     Dates: start: 20070101
  4. KADIAN ^KNOLL^ [Concomitant]
     Indication: BACK PAIN
     Dosage: 100 MG, 3X/DAY
     Dates: start: 20070101

REACTIONS (2)
  - DRUG INEFFECTIVE [None]
  - DYSGEUSIA [None]
